FAERS Safety Report 25049280 (Version 4)
Quarter: 2025Q1

REPORT INFORMATION
  Report Type: Spontaneous
  Country: US (occurrence: US)
  Receive Date: 20250307
  Receipt Date: 20250321
  Transmission Date: 20250409
  Serious: Yes (Other)
  Sender: Day One Biopharmaceuticals
  Company Number: US-Day One Biopharmaceuticals Inc.-2025US000337

PATIENT

DRUGS (2)
  1. OJEMDA [Suspect]
     Active Substance: TOVORAFENIB
     Indication: Optic glioma
     Route: 065
     Dates: start: 202501
  2. OJEMDA [Suspect]
     Active Substance: TOVORAFENIB
     Route: 065
     Dates: end: 202411

REACTIONS (1)
  - Demyelination [Not Recovered/Not Resolved]
